FAERS Safety Report 16137082 (Version 1)
Quarter: 2019Q2

REPORT INFORMATION
  Report Type: Spontaneous
  Country: US (occurrence: US)
  Receive Date: 20190401
  Receipt Date: 20190401
  Transmission Date: 20190711
  Serious: No
  Sender: FDA-Public Use
  Company Number: US-GLAXOSMITHKLINE-US2019054882

PATIENT
  Age: 72 Year
  Sex: Female

DRUGS (1)
  1. VENTOLIN HFA [Suspect]
     Active Substance: ALBUTEROL SULFATE
     Indication: CHRONIC OBSTRUCTIVE PULMONARY DISEASE
     Dosage: UNK
     Route: 055
     Dates: start: 20190307

REACTIONS (6)
  - Burning sensation [Unknown]
  - Urticaria [Unknown]
  - Product dose omission [Unknown]
  - Rash [Recovered/Resolved]
  - Keratosis pilaris [Unknown]
  - Pruritus [Unknown]

NARRATIVE: CASE EVENT DATE: 20190310
